FAERS Safety Report 15868283 (Version 1)
Quarter: 2019Q1

REPORT INFORMATION
  Report Type: Spontaneous
  Country: CH (occurrence: CH)
  Receive Date: 20190125
  Receipt Date: 20190125
  Transmission Date: 20190417
  Serious: Yes (Death, Life-Threatening, Hospitalization, Other)
  Sender: FDA-Public Use
  Company Number: CH-PFIZER INC-2019028750

PATIENT
  Age: 61 Year
  Sex: Male

DRUGS (10)
  1. ASPIRIN CARDIO [Concomitant]
     Active Substance: ASPIRIN
     Dosage: UNK
  2. GLUCOSE [Concomitant]
     Active Substance: DEXTROSE
     Dosage: UNK
  3. ALDACTONE [Suspect]
     Active Substance: SPIRONOLACTONE
     Dosage: 50 MG, 3X/DAY
     Dates: start: 20181227, end: 20181227
  4. HEPARIN [Suspect]
     Active Substance: HEPARIN SODIUM
     Dosage: UNK
     Dates: start: 20181227
  5. NOVALGIN (METAMIZOLE SODIUM) [Concomitant]
     Active Substance: METAMIZOLE SODIUM
     Dosage: UNK
  6. KONAKION MM [Concomitant]
     Active Substance: PHYTONADIONE
     Dosage: UNK
  7. DAFALGAN [Concomitant]
     Active Substance: ACETAMINOPHEN
     Dosage: UNK
  8. ZINC. [Concomitant]
     Active Substance: ZINC
     Dosage: UNK
     Route: 050
  9. OXYNORM [Concomitant]
     Active Substance: OXYCODONE HYDROCHLORIDE
     Dosage: UNK
  10. INVANZ [Concomitant]
     Active Substance: ERTAPENEM SODIUM
     Dosage: UNK
     Dates: end: 20181227

REACTIONS (5)
  - Shock haemorrhagic [Unknown]
  - Glomerular filtration rate decreased [Unknown]
  - Metabolic acidosis [Unknown]
  - Hyperkalaemia [Not Recovered/Not Resolved]
  - Vasoplegia syndrome [Unknown]

NARRATIVE: CASE EVENT DATE: 20181228
